FAERS Safety Report 25615399 (Version 1)
Quarter: 2025Q3

REPORT INFORMATION
  Report Type: Spontaneous
  Country: US (occurrence: US)
  Receive Date: 20250729
  Receipt Date: 20250729
  Transmission Date: 20251021
  Serious: No
  Sender: NOSTRUM PHARMACEUTICALS LLC
  Company Number: US-NP-2025-11004-LIT-01

PATIENT
  Age: 44 Year
  Sex: Female
  Weight: 81 kg

DRUGS (1)
  1. THEOPHYLLINE [Suspect]
     Active Substance: THEOPHYLLINE
     Route: 065

REACTIONS (2)
  - Palpitations [Recovered/Resolved]
  - Drug effect less than expected [Unknown]
